FAERS Safety Report 15904828 (Version 1)
Quarter: 2019Q1

REPORT INFORMATION
  Report Type: Spontaneous
  Country: DE (occurrence: DE)
  Receive Date: 20190204
  Receipt Date: 20190204
  Transmission Date: 20190417
  Serious: Yes (Hospitalization)
  Sender: FDA-Public Use
  Company Number: DE-ACCORD-105422

PATIENT
  Age: 56 Year
  Sex: Male

DRUGS (12)
  1. PREDNISOLONE. [Suspect]
     Active Substance: PREDNISOLONE
     Indication: PRODUCT USED FOR UNKNOWN INDICATION
     Dosage: 50 MG, NK
  2. CISPLATIN. [Suspect]
     Active Substance: CISPLATIN
     Indication: PRODUCT USED FOR UNKNOWN INDICATION
     Dosage: NK MG, NK
  3. MACROGOL/MACROGOL STEARATE [Concomitant]
     Dosage: NK MG, 1X TGL., BEUTEL
  4. PANTOPRAZOLE [Concomitant]
     Active Substance: PANTOPRAZOLE
     Dosage: 40 MG, 1-0-0-0
  5. METAMIZOLE SODIUM [Concomitant]
     Active Substance: METAMIZOLE SODIUM
     Dosage: 500 MG, 2-2-2-2
  6. VINORELBINE [Suspect]
     Active Substance: VINORELBINE\VINORELBINE TARTRATE
     Indication: PRODUCT USED FOR UNKNOWN INDICATION
     Dosage: NK MG, NK
  7. JANUVIA [Concomitant]
     Active Substance: SITAGLIPTIN PHOSPHATE
     Dosage: 100 MG, 1-0-0-0
  8. FORMOTEROL [Concomitant]
     Active Substance: FORMOTEROL
     Dosage: 12 MCG, 1-0-1-0
  9. TIOTROPIUM [Concomitant]
     Active Substance: TIOTROPIUM
     Dosage: 18 MCG, 1-0-0-0
  10. ACC [Concomitant]
     Active Substance: ACETYLCYSTEINE
     Dosage: 200 MG, 1-1-1-1
  11. INSULIN LISPRO/INSULIN LISPRO PROTAMINE SUSPE [Concomitant]
     Dosage: NK IE, NACH BZ
  12. LEVEMIR [Concomitant]
     Active Substance: INSULIN DETEMIR
     Dosage: 12 IE, 0-0-1-0

REACTIONS (3)
  - Nausea [Unknown]
  - Fatigue [Unknown]
  - General physical health deterioration [Unknown]
